FAERS Safety Report 12891264 (Version 7)
Quarter: 2017Q2

REPORT INFORMATION
  Report Type: Spontaneous
  Country: DE (occurrence: DE)
  Receive Date: 20161027
  Receipt Date: 20170615
  Transmission Date: 20170830
  Serious: Yes (Hospitalization, Disabling, Other)
  Sender: FDA-Public Use
  Company Number: DE-CONCORDIA PHARMACEUTICALS INC.-GSH201610-005369

PATIENT
  Sex: Female

DRUGS (2)
  1. HYDROXYCHLOROQUINE 200 MG TABLET [Suspect]
     Active Substance: HYDROXYCHLOROQUINE
     Indication: RASH PRURITIC
  2. HYDROXYCHLOROQUINE 200 MG TABLET [Suspect]
     Active Substance: HYDROXYCHLOROQUINE
     Indication: LICHEN PLANUS
     Route: 048
     Dates: start: 2001, end: 2014

REACTIONS (14)
  - Somnolence [Not Recovered/Not Resolved]
  - Acute motor-sensory axonal neuropathy [Unknown]
  - Spinal pain [Unknown]
  - Pain in extremity [Unknown]
  - Skin disorder [Unknown]
  - Polyneuropathy [Not Recovered/Not Resolved]
  - Pelvic pain [Unknown]
  - Pain in extremity [Not Recovered/Not Resolved]
  - Asthenia [Not Recovered/Not Resolved]
  - Gait disturbance [Not Recovered/Not Resolved]
  - Ataxia [Not Recovered/Not Resolved]
  - Fall [Unknown]
  - Impaired quality of life [Unknown]
  - Tendon pain [Not Recovered/Not Resolved]

NARRATIVE: CASE EVENT DATE: 2011
